FAERS Safety Report 7486752-5 (Version None)
Quarter: 2011Q2

REPORT INFORMATION
  Report Type: 
  Country: None (occurrence: None)
  Receive Date: 20110517
  Receipt Date: 20110506
  Transmission Date: 20111010
  Serious: Yes (Other)
  Sender: FDA-Public Use
  Company Number: US-ELI_LILLY_AND_COMPANY-US201105002901

PATIENT
  Sex: Female

DRUGS (3)
  1. HUMALOG [Suspect]
     Dosage: UNK UNK, TID
  2. HUMALOG [Suspect]
     Indication: TYPE 1 DIABETES MELLITUS
     Dosage: UNK UNK, TID
  3. LANTUS [Concomitant]
     Dosage: 14 U, QD

REACTIONS (7)
  - MEMORY IMPAIRMENT [None]
  - GAIT DISTURBANCE [None]
  - PAIN IN EXTREMITY [None]
  - HYPOGLYCAEMIC UNCONSCIOUSNESS [None]
  - TREMOR [None]
  - WRONG DRUG ADMINISTERED [None]
  - MUSCLE SPASMS [None]
